FAERS Safety Report 9133705 (Version 1)
Quarter: 2013Q1

REPORT INFORMATION
  Report Type: Report from Study
  Country: US (occurrence: US)
  Receive Date: 20130302
  Receipt Date: 20130302
  Transmission Date: 20140127
  Serious: Yes (Other)
  Sender: FDA-Public Use
  Company Number: US-US-EMD SERONO, INC.-7195951

PATIENT
  Age: 59 None
  Sex: Female

DRUGS (1)
  1. REBIF [Suspect]
     Indication: PRODUCT USED FOR UNKNOWN INDICATION
     Route: 058
     Dates: start: 20110715

REACTIONS (4)
  - Nephrolithiasis [Recovered/Resolved]
  - Uterine dilation and curettage [Unknown]
  - Hysteroscopy [Unknown]
  - Blood pressure increased [Not Recovered/Not Resolved]
